FAERS Safety Report 19058919 (Version 1)
Quarter: 2021Q1

REPORT INFORMATION
  Report Type: Spontaneous
  Country: US (occurrence: US)
  Receive Date: 20210325
  Receipt Date: 20210325
  Transmission Date: 20210420
  Serious: Yes (Other)
  Sender: FDA-Public Use
  Company Number: US-SCA PHARMACEUTICALS-2021SCA00005

PATIENT

DRUGS (1)
  1. OXYTOCIN IN 0.9% SODIUM CHLORIDE [Suspect]
     Active Substance: OXYTOCIN
     Dosage: UNK
     Route: 064
     Dates: start: 20210219, end: 202102

REACTIONS (2)
  - Foetal heart rate decreased [Unknown]
  - Foetal exposure during pregnancy [Recovered/Resolved]

NARRATIVE: CASE EVENT DATE: 20210219
